FAERS Safety Report 20211773 (Version 1)
Quarter: 2021Q4

REPORT INFORMATION
  Report Type: Spontaneous
  Country: CN (occurrence: CN)
  Receive Date: 20211221
  Receipt Date: 20211221
  Transmission Date: 20220303
  Serious: Yes (Hospitalization, Other)
  Sender: FDA-Public Use
  Company Number: None

PATIENT
  Age: 82 Year
  Sex: Male
  Weight: 62 kg

DRUGS (2)
  1. METOPROLOL SUCCINATE [Suspect]
     Active Substance: METOPROLOL SUCCINATE
     Route: 048
     Dates: start: 20210923, end: 20211118
  2. ISOPROTERENOL HYDROCHLORIDE [Concomitant]
     Active Substance: ISOPROTERENOL HYDROCHLORIDE
     Dosage: 1.0MG UNKNOWN
     Route: 042

REACTIONS (4)
  - Heart rate decreased [Recovering/Resolving]
  - Electrocardiogram RR interval prolonged [Recovering/Resolving]
  - Atrial fibrillation [Recovering/Resolving]
  - Product use in unapproved indication [Recovered/Resolved]

NARRATIVE: CASE EVENT DATE: 20211118
